FAERS Safety Report 19457227 (Version 1)
Quarter: 2021Q2

REPORT INFORMATION
  Report Type: Spontaneous
  Country: US (occurrence: US)
  Receive Date: 20210624
  Receipt Date: 20210624
  Transmission Date: 20210717
  Serious: Yes (Other)
  Sender: FDA-Public Use
  Company Number: US-TEVA-2021-US-1924673

PATIENT
  Age: 1 Year

DRUGS (3)
  1. FLUDARABINE [Suspect]
     Active Substance: FLUDARABINE PHOSPHATE
     Indication: BONE MARROW CONDITIONING REGIMEN
     Dosage: 360 MG/M2 DAILY; OVER 6 DAYS (ON DAYS ?8 TO ?3)
     Route: 065
  2. BUSULFAN. [Suspect]
     Active Substance: BUSULFAN
     Indication: BONE MARROW CONDITIONING REGIMEN
     Dosage: OVER 4 DAYS (ON DAYS ?5 TO ?2; AUC OF 63 MG/L X H)
     Route: 065
  3. ALEMTUZUMAB [Suspect]
     Active Substance: ALEMTUZUMAB
     Indication: DRUG THERAPY
     Dosage: OVER 3 DAYS (ON DAYS ?8 TO ?6)
     Route: 065

REACTIONS (1)
  - Thrombotic microangiopathy [Unknown]
